FAERS Safety Report 15452974 (Version 2)
Quarter: 2018Q4

REPORT INFORMATION
  Report Type: Spontaneous
  Country: PT (occurrence: PT)
  Receive Date: 20181001
  Receipt Date: 20181009
  Transmission Date: 20190204
  Serious: Yes (Other)
  Sender: FDA-Public Use
  Company Number: PT-ELI_LILLY_AND_COMPANY-PT201809009811

PATIENT
  Age: 70 Year
  Sex: Female

DRUGS (2)
  1. CONCOR [Concomitant]
     Active Substance: BISOPROLOL FUMARATE
     Indication: HYPERTENSION
     Dosage: 0.5 MG, DAILY
     Route: 048
  2. FORSTEO [Suspect]
     Active Substance: TERIPARATIDE
     Indication: OSTEOPOROSIS
     Dosage: 20 UG, EACH MORNING (DAILY)
     Route: 058
     Dates: start: 201712, end: 20180916

REACTIONS (7)
  - Pain [Unknown]
  - Asthenia [Recovering/Resolving]
  - Muscle spasms [Recovering/Resolving]
  - Micturition urgency [Recovering/Resolving]
  - Fatigue [Recovering/Resolving]
  - Gait disturbance [Unknown]
  - Myalgia [Recovering/Resolving]
